FAERS Safety Report 14155179 (Version 1)
Quarter: 2017Q4

REPORT INFORMATION
  Report Type: Spontaneous
  Country: FR (occurrence: FR)
  Receive Date: 20171103
  Receipt Date: 20171103
  Transmission Date: 20180321
  Serious: Yes (Hospitalization)
  Sender: FDA-Public Use
  Company Number: FR-ROCHE-2013955

PATIENT
  Age: 42 Year
  Sex: Male

DRUGS (9)
  1. IMOVANE [Suspect]
     Active Substance: ZOPICLONE
     Indication: INSOMNIA
     Dosage: ONGOING
     Route: 048
     Dates: start: 20151030
  2. LEPTICUR [Suspect]
     Active Substance: TROPATEPINE HYDROCHLORIDE
     Indication: PSYCHOTIC DISORDER
     Dosage: ONGOING
     Route: 048
     Dates: start: 20131114
  3. LOXAPAC [Suspect]
     Active Substance: LOXAPINE SUCCINATE
     Dosage: DAYS
     Route: 065
     Dates: start: 20170715
  4. LOXAPAC [Suspect]
     Active Substance: LOXAPINE SUCCINATE
     Indication: PSYCHOTIC DISORDER
     Dosage: ONGOING
     Route: 048
     Dates: start: 20160429
  5. VALIUM [Suspect]
     Active Substance: DIAZEPAM
     Indication: PSYCHOTIC DISORDER
     Dosage: ONGOING
     Route: 048
     Dates: start: 20160429
  6. ZYPREXA [Suspect]
     Active Substance: OLANZAPINE
     Indication: PSYCHOTIC DISORDER
     Dosage: ONGOING
     Route: 048
     Dates: start: 20160210
  7. INEXIUM [Suspect]
     Active Substance: ESOMEPRAZOLE
     Indication: PROPHYLAXIS
     Dosage: ONGOING
     Route: 048
     Dates: start: 20160226
  8. SULFARLEM S25 [Suspect]
     Active Substance: ANETHOLTRITHION
     Indication: APTYALISM
     Dosage: ONGOING
     Route: 048
     Dates: start: 20150622
  9. VALIUM [Suspect]
     Active Substance: DIAZEPAM
     Dosage: DAYS
     Route: 065
     Dates: start: 20170715

REACTIONS (10)
  - Product use in unapproved indication [Unknown]
  - Communication disorder [None]
  - Blood culture positive [None]
  - Endocarditis [None]
  - Dysphagia [None]
  - Escherichia infection [None]
  - Off label use [Unknown]
  - Sepsis [None]
  - Staphylococcal infection [None]
  - Ischaemic stroke [Recovering/Resolving]

NARRATIVE: CASE EVENT DATE: 20170704
